FAERS Safety Report 20310376 (Version 1)
Quarter: 2022Q1

REPORT INFORMATION
  Report Type: Spontaneous
  Country: SE (occurrence: SE)
  Receive Date: 20220107
  Receipt Date: 20220107
  Transmission Date: 20220423
  Serious: Yes (Hospitalization)
  Sender: FDA-Public Use
  Company Number: None

PATIENT
  Age: 76 Year
  Sex: Male

DRUGS (22)
  1. AMITRIPTYLINE [Suspect]
     Active Substance: AMITRIPTYLINE
     Indication: Product used for unknown indication
     Dates: end: 202110
  2. BEZAFIBRATE [Suspect]
     Active Substance: BEZAFIBRATE
     Indication: Product used for unknown indication
     Dates: end: 202110
  3. OXYCODONE HYDROCHLORIDE [Suspect]
     Active Substance: OXYCODONE HYDROCHLORIDE
     Indication: Product used for unknown indication
     Dosage: 1 AS REQUIRED, DOSE: 1
  4. ALFACALCIDOL [Concomitant]
     Active Substance: ALFACALCIDOL
     Dosage: STRENGTH:  0.25 MICROGRAM, DOSE: 1
     Dates: start: 20210604
  5. ALLOPURINOL [Concomitant]
     Active Substance: ALLOPURINOL
     Dosage: STRENGTH:  100 MG, 1X1, DOSE: 1
  6. ATORVASTATIN [Concomitant]
     Active Substance: ATORVASTATIN
     Dosage: STRENGTH: 20 MG, DOSE: 1, 1X1
     Dates: start: 20210604
  7. BISOPROLOL [Concomitant]
     Active Substance: BISOPROLOL
     Dosage: STRENGTH:  2.5 MG, DOSE: 1, 1X1
     Dates: start: 20210604
  8. DENTAN [Concomitant]
     Active Substance: SODIUM FLUORIDE
     Dosage: STRENGTH: 0.2%, 10 ML X 1-2
     Dates: start: 20210722
  9. FINASTERIDE [Concomitant]
     Active Substance: FINASTERIDE
     Dosage: STRENGTH: 5 MG, DOSE: 1, 1X1
     Dates: start: 20210604
  10. FOLIC ACID [Concomitant]
     Active Substance: FOLIC ACID
     Dosage: STRENGTH: 1 MG, DOSE: 1, 1X1
     Dates: start: 20210604
  11. Furix [Concomitant]
     Dosage: STRENGTH:500 MG, DOSE: 2, 1X2
  12. HUMALOG [Concomitant]
     Active Substance: INSULIN LISPRO
     Dosage: STRENGTH: 100 U / ML SOLUTION FOR INJECTION, SOLUTION IN PRE-FILLED?INJECTION
     Dates: start: 20210310
  13. HYDROCORTISONE [Concomitant]
     Active Substance: HYDROCORTISONE
     Dosage: STRENGTH: 10 MG, DOSE: 2, 1X2
     Dates: start: 20210604
  14. HERBALS\KARAYA GUM [Concomitant]
     Active Substance: HERBALS\KARAYA GUM
     Dosage: ORAL POWDER IN SACHET, 1X1-3 OR AS REQUIRED
     Dates: start: 20210120
  15. INSULIN DEGLUDEC [Concomitant]
     Active Substance: INSULIN DEGLUDEC
     Dosage: STRENGTH: 200 UNITS / ML, SOLUTION FOR INJECTION, SOLUTION IN PRE-FILLED INJECTION
  16. LEVOTHYROXINE SODIUM [Concomitant]
     Active Substance: LEVOTHYROXINE SODIUM
     Dosage: STRENGTH: 75 MICROGRAMS, 1 TABLET 4 TIMES / WEEK, DOSE: 4
     Dates: start: 20210604
  17. MOMETASONE [Concomitant]
     Active Substance: MOMETASONE
     Dosage: STRENGTH:  50 MICROGRAMS / DOSE NASAL SPRAY, SUSPENSION
     Dates: start: 20210215
  18. NYSTATIN [Concomitant]
     Active Substance: NYSTATIN
     Dosage: STRENGTH: 100000 IU / ML, 1 ML X 3-4
     Dates: start: 20210908
  19. POTASSIUM CHLORIDE [Concomitant]
     Active Substance: POTASSIUM CHLORIDE
     Dosage: STRENGTH:  750 MG, DOSE: 1
     Dates: start: 20210722
  20. SEVELAMER CARBONATE [Concomitant]
     Active Substance: SEVELAMER CARBONATE
     Dosage: STRENGTH:800 MG, DOSE : 3, 3X3
     Dates: start: 20210727
  21. SEMAGLUTIDE [Concomitant]
     Active Substance: SEMAGLUTIDE
     Dosage: STRENGTH: 1 MG, SOLUTION FOR INJECTION, SOLUTION IN PRE-FILLED INJECTION PEN, 1 MG/V, DOSE: 1
     Dates: start: 20210604
  22. SPIRONOLACTONE [Concomitant]
     Active Substance: SPIRONOLACTONE
     Dosage: STRENGTH:  25 MG, DOSE: 1, 0.5X1
     Dates: start: 20210722

REACTIONS (2)
  - Muscle twitching [Recovering/Resolving]
  - General physical health deterioration [Recovering/Resolving]

NARRATIVE: CASE EVENT DATE: 20211001
